FAERS Safety Report 21124630 (Version 2)
Quarter: 2022Q4

REPORT INFORMATION
  Report Type: Spontaneous
  Country: US (occurrence: US)
  Receive Date: 20220725
  Receipt Date: 20221210
  Transmission Date: 20230113
  Serious: Yes (Death, Other)
  Sender: FDA-Public Use
  Company Number: US-BRISTOL-MYERS SQUIBB COMPANY-2022-078480

PATIENT
  Age: 69 Year
  Sex: Female
  Weight: 63.9 kg

DRUGS (2)
  1. OPDIVO [Suspect]
     Active Substance: NIVOLUMAB
     Indication: Transitional cell carcinoma
     Dosage: DOSE : OPDIVO 201MG / YERVOY 65MG;     FREQ : EVERY 3 WEEKS
     Route: 042
     Dates: start: 20220624
  2. YERVOY [Suspect]
     Active Substance: IPILIMUMAB
     Indication: Transitional cell carcinoma
     Route: 042
     Dates: start: 20220624

REACTIONS (2)
  - Malignant neoplasm progression [Fatal]
  - Intentional product use issue [Unknown]

NARRATIVE: CASE EVENT DATE: 20220718
